FAERS Safety Report 23365079 (Version 3)
Quarter: 2024Q1

REPORT INFORMATION
  Report Type: Report from Study
  Country: AE (occurrence: AE)
  Receive Date: 20240104
  Receipt Date: 20240126
  Transmission Date: 20240410
  Serious: Yes (Hospitalization)
  Sender: FDA-Public Use
  Company Number: AE-AstraZeneca-2023A294845

PATIENT
  Age: 10 Month
  Sex: Female

DRUGS (1)
  1. PALIVIZUMAB [Suspect]
     Active Substance: PALIVIZUMAB
     Indication: Antiviral prophylaxis
     Dosage: 15 MG/KG, ONCE EVERY FOUR WEEKS
     Route: 030
     Dates: start: 20231130

REACTIONS (1)
  - Wheezing [Not Recovered/Not Resolved]
